FAERS Safety Report 15919008 (Version 2)
Quarter: 2019Q1

REPORT INFORMATION
  Report Type: Spontaneous
  Country: US (occurrence: US)
  Receive Date: 20190205
  Receipt Date: 20190205
  Transmission Date: 20190417
  Serious: No
  Sender: FDA-Public Use
  Company Number: US-ALLERGAN-1851621US

PATIENT
  Sex: Female

DRUGS (5)
  1. URSODEOXYCHOLIC ACID - BP [Suspect]
     Active Substance: URSODIOL
     Indication: PRIMARY BILIARY CHOLANGITIS
     Dosage: UNK
     Route: 065
  2. AERIUS [Concomitant]
     Indication: HYPERSENSITIVITY
     Dosage: UNK UNK, QD
  3. UNSCENTED HYDRATING LOTIONS [Concomitant]
     Indication: DRY SKIN PROPHYLAXIS
  4. URSODEOXYCHOLIC ACID - BP [Suspect]
     Active Substance: URSODIOL
     Dosage: UNK
     Route: 065
  5. OCALIVA [Suspect]
     Active Substance: OBETICHOLIC ACID
     Indication: PRODUCT USED FOR UNKNOWN INDICATION
     Dosage: 5 MG, QD
     Route: 048
     Dates: start: 20180319

REACTIONS (3)
  - Pruritus [Unknown]
  - Blood bilirubin abnormal [Not Recovered/Not Resolved]
  - Drug ineffective [Unknown]
